FAERS Safety Report 6445129-1 (Version None)
Quarter: 2009Q4

REPORT INFORMATION
  Report Type: 
  Country: None (occurrence: None)
  Receive Date: 20091110
  Receipt Date: 20090824
  Transmission Date: 20100525
  Serious: No
  Sender: FDA-Public Use
  Company Number: 1000008378

PATIENT
  Age: 72 Year
  Sex: Female

DRUGS (17)
  1. SAVELLA [Suspect]
     Indication: ARTHRALGIA
     Dosage: 12.5 MG (12.5 MG, 1 IN 1 D), ORAL : 25 MG (12.5 MG, 2 IN 1 D), ORAL : 50 MG (25 MG, 2 IN 1 D), ORAL
     Route: 048
     Dates: start: 20090819, end: 20090819
  2. SAVELLA [Suspect]
     Indication: ARTHRALGIA
     Dosage: 12.5 MG (12.5 MG, 1 IN 1 D), ORAL : 25 MG (12.5 MG, 2 IN 1 D), ORAL : 50 MG (25 MG, 2 IN 1 D), ORAL
     Route: 048
     Dates: start: 20090820, end: 20090821
  3. SAVELLA [Suspect]
     Indication: ARTHRALGIA
     Dosage: 12.5 MG (12.5 MG, 1 IN 1 D), ORAL : 25 MG (12.5 MG, 2 IN 1 D), ORAL : 50 MG (25 MG, 2 IN 1 D), ORAL
     Route: 048
     Dates: start: 20090822
  4. METFORMIN HCL [Concomitant]
  5. BYETTA [Concomitant]
  6. HYZAAR [Concomitant]
  7. CLONIDINE [Concomitant]
  8. ASACOL [Concomitant]
  9. ADVAIR DISKUS 100/50 [Concomitant]
  10. CLARINEX [Concomitant]
  11. SINGULAIR [Concomitant]
  12. LIPITOR [Concomitant]
  13. ACIPHEX [Concomitant]
  14. KLONOPIN [Concomitant]
  15. KLOR-CON [Concomitant]
  16. FORTEO [Concomitant]
  17. FISH OIL [Concomitant]

REACTIONS (1)
  - MUSCLE SPASMS [None]
